FAERS Safety Report 7133521-1 (Version None)
Quarter: 2010Q4

REPORT INFORMATION
  Report Type: 
  Country: None (occurrence: None)
  Receive Date: 20101202
  Receipt Date: 20101129
  Transmission Date: 20110411
  Serious: Yes (Other)
  Sender: FDA-Public Use
  Company Number: US-PFIZER INC-2010159635

PATIENT
  Sex: Male
  Weight: 87.982 kg

DRUGS (5)
  1. SUTENT [Suspect]
     Indication: GASTROINTESTINAL STROMAL TUMOUR
     Dosage: 50 MG, 1X/DAY
     Route: 048
     Dates: start: 20100701, end: 20101122
  2. LASIX [Concomitant]
     Indication: OEDEMA
     Dosage: UNK
     Route: 048
  3. AMBIEN [Concomitant]
     Indication: INSOMNIA
     Dosage: UNK
     Route: 048
  4. LEVOTHYROXINE [Concomitant]
     Dosage: UNK
     Route: 048
  5. GLEEVEC [Concomitant]
     Dosage: UNK
     Route: 048

REACTIONS (2)
  - HYPERTENSION [None]
  - MEDICAL DEVICE COMPLICATION [None]
